FAERS Safety Report 6112562-7 (Version None)
Quarter: 2009Q1

REPORT INFORMATION
  Report Type: 
  Country: None (occurrence: None)
  Receive Date: 20090310
  Receipt Date: 20090223
  Transmission Date: 20090719
  Serious: Yes (Death)
  Sender: FDA-Public Use
  Company Number: 2009S1003073

PATIENT
  Age: 65 Year
  Sex: Male

DRUGS (3)
  1. VALPROIC ACID [Suspect]
  2. SIROLIMUS [Concomitant]
  3. PREDNISONE [Concomitant]

REACTIONS (2)
  - ANTICONVULSANT DRUG LEVEL INCREASED [None]
  - COMPLETED SUICIDE [None]
